FAERS Safety Report 11099382 (Version 1)
Quarter: 2015Q2

REPORT INFORMATION
  Report Type: Spontaneous
  Country: US (occurrence: US)
  Receive Date: 20150508
  Receipt Date: 20150508
  Transmission Date: 20150821
  Serious: Yes (Hospitalization, Other)
  Sender: FDA-Public Use
  Company Number: US-BIOGENIDEC-2015BI058860

PATIENT
  Sex: Female

DRUGS (1)
  1. TYSABRI [Suspect]
     Active Substance: NATALIZUMAB
     Indication: MULTIPLE SCLEROSIS
     Route: 042
     Dates: start: 20060916, end: 20070216

REACTIONS (5)
  - Renal failure [Unknown]
  - Paraplegia [Not Recovered/Not Resolved]
  - Immune system disorder [Recovered/Resolved]
  - General physical health deterioration [Not Recovered/Not Resolved]
  - Drug ineffective [Recovered/Resolved]
